FAERS Safety Report 5904691-5 (Version None)
Quarter: 2008Q4

REPORT INFORMATION
  Report Type: 
  Country: None (occurrence: None)
  Receive Date: 20081001
  Receipt Date: 20080922
  Transmission Date: 20090506
  Serious: Yes (Hospitalization)
  Sender: FDA-Public Use
  Company Number: FR-ABBOTT-08P-056-0477465-00

PATIENT
  Sex: Female

DRUGS (2)
  1. MICROPAKINE GRANULE [Suspect]
     Indication: ENURESIS
     Route: 048
     Dates: start: 20070810, end: 20070902
  2. MICROPAKINE GRANULE [Suspect]
     Indication: DYSKINESIA

REACTIONS (7)
  - ABDOMINAL PAIN [None]
  - DEPRESSED MOOD [None]
  - ILL-DEFINED DISORDER [None]
  - RASH PRURITIC [None]
  - RASH VESICULAR [None]
  - SUPERIOR MESENTERIC ARTERY SYNDROME [None]
  - VOMITING [None]
